FAERS Safety Report 6859000-4 (Version None)
Quarter: 2010Q3

REPORT INFORMATION
  Report Type: 
  Country: None (occurrence: None)
  Receive Date: 20100719
  Receipt Date: 20080219
  Transmission Date: 20110219
  Serious: Yes (Other)
  Sender: FDA-Public Use
  Company Number: US-PFIZER INC-2008016997

PATIENT
  Sex: Female

DRUGS (1)
  1. CHANTIX [Suspect]
     Indication: SMOKING CESSATION THERAPY

REACTIONS (6)
  - DEPRESSED MOOD [None]
  - DYSPEPSIA [None]
  - FLATULENCE [None]
  - NAUSEA [None]
  - SOMNOLENCE [None]
  - TYPE 2 DIABETES MELLITUS [None]
